FAERS Safety Report 6060622-1 (Version None)
Quarter: 2009Q1

REPORT INFORMATION
  Report Type: 
  Country: None (occurrence: None)
  Receive Date: 20090202
  Receipt Date: 20090115
  Transmission Date: 20090719
  Serious: No
  Sender: FDA-Public Use
  Company Number: CA-ASTRAZENECA-2009UW01394

PATIENT
  Sex: Female

DRUGS (1)
  1. TENORETIC 100 [Suspect]
     Dosage: 50/25 MG
     Route: 048

REACTIONS (1)
  - ABDOMINAL PAIN [None]
